FAERS Safety Report 16877049 (Version 1)
Quarter: 2019Q4

REPORT INFORMATION
  Report Type: Spontaneous
  Country: US (occurrence: US)
  Receive Date: 20191002
  Receipt Date: 20191002
  Transmission Date: 20200122
  Serious: Yes (Hospitalization, Other)
  Sender: FDA-Public Use
  Company Number: US-PFIZER INC-2019421430

PATIENT
  Age: 48 Year
  Sex: Female

DRUGS (2)
  1. ACETAMINOPHEN W/OXYCODONE [Concomitant]
     Active Substance: ACETAMINOPHEN\OXYCODONE HYDROCHLORIDE
     Indication: PAIN
     Dosage: UNK, AS NEEDED (5/352 MG,1 TABLET BY MOUTH EVERY 4 HOURS )
     Route: 048
     Dates: start: 201909
  2. LYRICA [Suspect]
     Active Substance: PREGABALIN
     Indication: NEUROPATHY PERIPHERAL
     Dosage: 200 MG, 2X/DAY
     Route: 048

REACTIONS (5)
  - Weight decreased [Unknown]
  - Pruritus [Not Recovered/Not Resolved]
  - Renal disorder [Unknown]
  - Withdrawal syndrome [Not Recovered/Not Resolved]
  - Burning sensation [Unknown]

NARRATIVE: CASE EVENT DATE: 201909
